FAERS Safety Report 5793125-X (Version None)
Quarter: 2008Q2

REPORT INFORMATION
  Report Type: 
  Country: None (occurrence: None)
  Receive Date: 20080627
  Receipt Date: 20080408
  Transmission Date: 20081010
  Serious: No
  Sender: FDA-Public Use
  Company Number: A0714603A

PATIENT
  Age: 38 Year
  Sex: Female
  Weight: 128.2 kg

DRUGS (5)
  1. FLOVENT [Suspect]
     Indication: ASTHMA
     Dosage: 2PUFF TWICE PER DAY
     Route: 055
     Dates: start: 20071106
  2. NO CONCURRENT MEDICATION [Concomitant]
  3. ALBUTEROL [Concomitant]
     Indication: ASTHMA
     Dosage: 2PUFF FOUR TIMES PER DAY
     Route: 055
     Dates: start: 20071106
  4. ALBUTEROL [Concomitant]
     Route: 055
     Dates: start: 20071106
  5. DARVOCET [Concomitant]
     Route: 048
     Dates: start: 20080310

REACTIONS (4)
  - ARTHRALGIA [None]
  - DRUG ADMINISTRATION ERROR [None]
  - DYSPHONIA [None]
  - OSTEOARTHRITIS [None]
